FAERS Safety Report 4535505-6 (Version None)
Quarter: 2004Q4

REPORT INFORMATION
  Report Type: 
  Country: None (occurrence: None)
  Receive Date: 20041222
  Receipt Date: 20041213
  Transmission Date: 20050328
  Serious: Yes (Hospitalization)
  Sender: FDA-Public Use
  Company Number: US-MERCK-0412USA01683

PATIENT
  Sex: Female

DRUGS (4)
  1. VIOXX [Suspect]
     Indication: BACK DISORDER
     Route: 048
     Dates: end: 20010821
  2. VIOXX [Suspect]
     Route: 048
     Dates: start: 20020101, end: 20021125
  3. VIOXX [Suspect]
     Indication: ARTHRITIS
     Route: 048
     Dates: end: 20010821
  4. VIOXX [Suspect]
     Route: 048
     Dates: start: 20020101, end: 20021125

REACTIONS (5)
  - ARTHROPATHY [None]
  - CORONARY ARTERY DISEASE [None]
  - MYOCARDIAL INFARCTION [None]
  - PAIN [None]
  - ULCER HAEMORRHAGE [None]
